FAERS Safety Report 5873248-7 (Version None)
Quarter: 2008Q3

REPORT INFORMATION
  Report Type: 
  Country: None (occurrence: None)
  Receive Date: 20080908
  Receipt Date: 20080828
  Transmission Date: 20090109
  Serious: Yes (Death, Hospitalization)
  Sender: FDA-Public Use
  Company Number: JP-AMGEN-US297169

PATIENT
  Sex: Female
  Weight: 52 kg

DRUGS (7)
  1. ENBREL [Suspect]
     Indication: RHEUMATOID ARTHRITIS
     Route: 058
     Dates: start: 20050714
  2. ULCERMIN [Concomitant]
     Indication: PROPHYLAXIS AGAINST GASTROINTESTINAL ULCER
     Route: 048
     Dates: end: 20070228
  3. MICARDIS [Concomitant]
     Indication: HYPERTENSION
     Route: 048
     Dates: end: 20070228
  4. ATELEC [Concomitant]
     Indication: HYPERTENSION
     Route: 048
     Dates: end: 20070228
  5. MAGNESIUM OXIDE [Concomitant]
     Indication: PROPHYLAXIS AGAINST GASTROINTESTINAL ULCER
     Route: 048
  6. PREDNISOLONE [Concomitant]
     Indication: RHEUMATOID ARTHRITIS
     Route: 048
     Dates: end: 20070228
  7. FAMOTIDINE [Concomitant]
     Indication: PROPHYLAXIS AGAINST GASTROINTESTINAL ULCER
     Route: 048
     Dates: end: 20070228

REACTIONS (3)
  - AORTIC DISSECTION RUPTURE [None]
  - KNEE ARTHROPLASTY [None]
  - WOUND DECOMPOSITION [None]
